FAERS Safety Report 6774841-X (Version None)
Quarter: 2010Q2

REPORT INFORMATION
  Report Type: 
  Country: None (occurrence: None)
  Receive Date: 20100617
  Receipt Date: 20100611
  Transmission Date: 20101027
  Serious: Yes (Other)
  Sender: FDA-Public Use
  Company Number: GB-WYE-G06262310

PATIENT
  Sex: Male

DRUGS (1)
  1. RAPAMUNE [Suspect]
     Indication: DRUG INTOLERANCE
     Route: 048

REACTIONS (3)
  - CELLULITIS [None]
  - IMMUNOSUPPRESSANT DRUG LEVEL INCREASED [None]
  - SUBCUTANEOUS ABSCESS [None]
